FAERS Safety Report 8538873-3 (Version None)
Quarter: 2012Q3

REPORT INFORMATION
  Report Type: 
  Country: None (occurrence: None)
  Receive Date: 20120726
  Receipt Date: 20120423
  Transmission Date: 20120928
  Serious: No
  Sender: FDA-Public Use
  Company Number: US-MYLANLABS-2012S1004078

PATIENT
  Age: 58 Year
  Sex: Male
  Weight: 82.56 kg

DRUGS (7)
  1. PROVENTIL [Concomitant]
     Indication: ASTHMA
  2. TRAMADOL HYDROCHLORIDE [Suspect]
     Indication: BACK PAIN
     Dates: start: 20111003, end: 20111001
  3. DIOVAN [Concomitant]
     Indication: BLOOD PRESSURE INCREASED
  4. CYCLOBENZAPRINE HCL [Suspect]
     Indication: BACK PAIN
     Dates: start: 20111003, end: 20111001
  5. CIALIS [Concomitant]
     Indication: ERECTILE DYSFUNCTION
  6. ADVAIR DISKUS 100/50 [Concomitant]
     Indication: ASTHMA
  7. ALBUTEROL [Concomitant]
     Indication: ASTHMA

REACTIONS (2)
  - REACTION TO DRUG EXCIPIENTS [None]
  - ERECTILE DYSFUNCTION [None]
